FAERS Safety Report 6832709-4 (Version None)
Quarter: 2010Q3

REPORT INFORMATION
  Report Type: 
  Country: None (occurrence: None)
  Receive Date: 20100712
  Receipt Date: 20070504
  Transmission Date: 20110219
  Serious: No
  Sender: FDA-Public Use
  Company Number: US-PFIZER INC-2007020285

PATIENT
  Sex: Female

DRUGS (3)
  1. CHANTIX [Suspect]
     Indication: SMOKING CESSATION THERAPY
     Dates: start: 20070301
  2. REMERON [Concomitant]
  3. VICODIN [Concomitant]

REACTIONS (6)
  - CONSTIPATION [None]
  - DIZZINESS [None]
  - FEELING ABNORMAL [None]
  - FEELING HOT [None]
  - NAUSEA [None]
  - VOMITING [None]
